FAERS Safety Report 16008363 (Version 1)
Quarter: 2019Q1

REPORT INFORMATION
  Report Type: Spontaneous
  Country: US (occurrence: US)
  Receive Date: 20190225
  Receipt Date: 20190225
  Transmission Date: 20190418
  Serious: No
  Sender: FDA-Public Use
  Company Number: US-AMGEN-ITASP2018129865

PATIENT
  Age: 33 Year
  Sex: Female

DRUGS (3)
  1. METHOTREXATE SODIUM. [Suspect]
     Active Substance: METHOTREXATE SODIUM
     Indication: PITYRIASIS RUBRA PILARIS
     Dosage: 20 MG, WEEKLY
     Route: 065
  2. ENBREL [Suspect]
     Active Substance: ETANERCEPT
     Indication: PITYRIASIS RUBRA PILARIS
     Dosage: 50 MG, 2 TIMES/WK (FOR 8 WEEKS)
     Route: 065
  3. PREDNISONE. [Suspect]
     Active Substance: PREDNISONE
     Indication: PITYRIASIS RUBRA PILARIS
     Dosage: UNK, 1X/DAY (10-60 MG/DAY)
     Route: 065

REACTIONS (1)
  - Product use in unapproved indication [Unknown]
